FAERS Safety Report 9818288 (Version 1)
Quarter: 2014Q1

REPORT INFORMATION
  Report Type: Spontaneous
  Country: US (occurrence: US)
  Receive Date: 20140115
  Receipt Date: 20140115
  Transmission Date: 20141002
  Serious: No
  Sender: FDA-Public Use
  Company Number: US-BAYER-2014-006583

PATIENT
  Sex: Female

DRUGS (2)
  1. ALEVE CAPLET [Suspect]
     Indication: FIBROMYALGIA
  2. LYRICA [Concomitant]
     Indication: FIBROMYALGIA
     Dosage: 50 MG, UNK

REACTIONS (2)
  - Extra dose administered [None]
  - Gastric disorder [None]
